FAERS Safety Report 8808855 (Version 1)
Quarter: 2012Q4

REPORT INFORMATION
  Report Type: Spontaneous
  Country: US (occurrence: None)
  Receive Date: 20120921
  Receipt Date: 20120921
  Transmission Date: 20130627
  Serious: Yes (Hospitalization)
  Sender: FDA-Public Use
  Company Number: None

PATIENT
  Age: 59 Year
  Sex: Male
  Weight: 78.1 kg

DRUGS (2)
  1. TRAMADOL [Suspect]
     Route: 048
     Dates: start: 20040329, end: 20120501
  2. BUPROPION [Suspect]
     Route: 048
     Dates: start: 20050308, end: 20120412

REACTIONS (1)
  - Convulsion [None]
